FAERS Safety Report 7022760-6 (Version None)
Quarter: 2010Q3

REPORT INFORMATION
  Report Type: 
  Country: None (occurrence: None)
  Receive Date: 20100930
  Receipt Date: 20100923
  Transmission Date: 20110219
  Serious: Yes (Life-Threatening, Hospitalization)
  Sender: FDA-Public Use
  Company Number: A0883864A

PATIENT
  Sex: Male

DRUGS (1)
  1. EPIVIR-HBV [Suspect]
     Dosage: 1TAB PER DAY
     Route: 048
     Dates: start: 20100701, end: 20100817

REACTIONS (3)
  - HAEMATEMESIS [None]
  - NAUSEA [None]
  - ULCER HAEMORRHAGE [None]
